FAERS Safety Report 10175270 (Version 2)
Quarter: 2015Q2

REPORT INFORMATION
  Report Type: Spontaneous
  Country: US (occurrence: US)
  Receive Date: 20140515
  Receipt Date: 20150514
  Transmission Date: 20150821
  Serious: No
  Sender: FDA-Public Use
  Company Number: US-VIVUS-2014V1000128

PATIENT
  Sex: Female

DRUGS (1)
  1. QSYMIA [Suspect]
     Active Substance: PHENTERMINE HYDROCHLORIDE\TOPIRAMATE
     Indication: PRODUCT USED FOR UNKNOWN INDICATION

REACTIONS (1)
  - Pregnancy [Unknown]

NARRATIVE: CASE EVENT DATE: 20140317
